FAERS Safety Report 15478808 (Version 2)
Quarter: 2022Q1

REPORT INFORMATION
  Report Type: Report from Study
  Country: FR (occurrence: FR)
  Receive Date: 20181009
  Receipt Date: 20220204
  Transmission Date: 20220423
  Serious: Yes (Hospitalization, Other)
  Sender: FDA-Public Use
  Company Number: FR-SHIRE-FR201838017

PATIENT

DRUGS (8)
  1. PEGASPARGASE [Suspect]
     Active Substance: PEGASPARGASE
     Indication: Acute lymphocytic leukaemia
     Dosage: 1125 IU, QD
     Dates: start: 20180730, end: 20180903
  2. MERCAPTOPURINE [Suspect]
     Active Substance: MERCAPTOPURINE
     Indication: Acute lymphocytic leukaemia
     Dosage: 26 MG, 1X/DAY:QD
     Route: 048
     Dates: start: 20180716, end: 20180902
  3. CYCLOPHOSPHAMIDE [Suspect]
     Active Substance: CYCLOPHOSPHAMIDE
     Indication: Acute lymphocytic leukaemia
     Dosage: 450 MG, 1X/DAY:QD
     Route: 042
     Dates: start: 20180716, end: 20180820
  4. VINCRISTINE SULFATE [Suspect]
     Active Substance: VINCRISTINE SULFATE
     Indication: Acute lymphocytic leukaemia
     Dosage: 0.7 MG, 1X/DAY:QD
     Route: 042
     Dates: start: 20180730, end: 20180910
  5. CYTARABINE [Suspect]
     Active Substance: CYTARABINE
     Indication: Acute lymphocytic leukaemia
     Dosage: 34 MG, 1X/DAY:QD
     Route: 042
     Dates: start: 20180718, end: 20180901
  6. CYTARABINE [Suspect]
     Active Substance: CYTARABINE
     Dosage: 20 MG, 1X/DAY:QD
     Route: 037
     Dates: start: 20180718, end: 20180822
  7. METHOTREXATE [Suspect]
     Active Substance: METHOTREXATE
     Indication: Acute lymphocytic leukaemia
     Dosage: 8 MG, 1X/DAY:QD
     Route: 037
     Dates: start: 20180718, end: 20180822
  8. HYDROCORTISONE [Suspect]
     Active Substance: HYDROCORTISONE
     Indication: Acute lymphocytic leukaemia
     Dosage: 10 MG, 1X/DAY:QD
     Route: 037
     Dates: start: 20180718, end: 20180822

REACTIONS (2)
  - Febrile bone marrow aplasia [Recovered/Resolved]
  - Enterococcus test positive [Recovered/Resolved]

NARRATIVE: CASE EVENT DATE: 20180911
